FAERS Safety Report 9561601 (Version 1)
Quarter: 2013Q3

REPORT INFORMATION
  Report Type: Spontaneous
  Country: US (occurrence: US)
  Receive Date: 20130927
  Receipt Date: 20130927
  Transmission Date: 20140515
  Serious: No
  Sender: FDA-Public Use
  Company Number: US-BIOGENIDEC-2013BI061546

PATIENT
  Age: 35 Year
  Sex: Female

DRUGS (3)
  1. TECFIDERA [Suspect]
     Indication: MULTIPLE SCLEROSIS
     Route: 048
     Dates: start: 20130606, end: 20130612
  2. TECFIDERA [Suspect]
     Indication: MULTIPLE SCLEROSIS
     Route: 048
     Dates: start: 20130613
  3. TECFIDERA [Suspect]
     Indication: MULTIPLE SCLEROSIS

REACTIONS (10)
  - Muscle spasms [Recovered/Resolved]
  - General symptom [Unknown]
  - Feeling of despair [Unknown]
  - Abdominal distension [Recovered/Resolved]
  - Prescribed underdose [Not Recovered/Not Resolved]
  - Dizziness [Recovered/Resolved]
  - Nausea [Recovered/Resolved]
  - Gastrointestinal disorder [Recovered/Resolved]
  - Diarrhoea [Recovered/Resolved]
  - Retching [Recovered/Resolved]
